FAERS Safety Report 16030063 (Version 1)
Quarter: 2019Q2

REPORT INFORMATION
  Report Type: Spontaneous
  Country: US (occurrence: US)
  Receive Date: 20190304
  Receipt Date: 20190304
  Transmission Date: 20190711
  Serious: Yes (Life-Threatening, Hospitalization, Disabling)
  Sender: FDA-Public Use
  Company Number: None

PATIENT
  Age: 46 Year
  Sex: Male
  Weight: 90 kg

DRUGS (5)
  1. LUNESTA [Concomitant]
     Active Substance: ESZOPICLONE
  2. IRON [Concomitant]
     Active Substance: IRON
  3. LOSARTEN [Suspect]
     Active Substance: LOSARTAN
     Indication: HYPERTENSION
     Dosage: ?          QUANTITY:90 TABLET(S);?
     Route: 048
     Dates: start: 20170505, end: 20190304
  4. CHEMO [Concomitant]
     Active Substance: UNSPECIFIED INGREDIENT
  5. RADIATION [Concomitant]
     Active Substance: RADIATION THERAPY

REACTIONS (1)
  - Rectal cancer stage IV [None]

NARRATIVE: CASE EVENT DATE: 20181121
